FAERS Safety Report 24643710 (Version 1)
Quarter: 2024Q4

REPORT INFORMATION
  Report Type: Spontaneous
  Country: GR (occurrence: GR)
  Receive Date: 20241120
  Receipt Date: 20241120
  Transmission Date: 20250114
  Serious: No
  Sender: PFIZER
  Company Number: GR-PFIZER INC-PV202400148333

PATIENT
  Age: 10 Year
  Sex: Male
  Weight: 27 kg

DRUGS (1)
  1. GENOTROPIN [Suspect]
     Active Substance: SOMATROPIN
     Indication: Dwarfism
     Dosage: 0.8 MG
     Route: 058
     Dates: start: 202411

REACTIONS (3)
  - Wrong technique in device usage process [Unknown]
  - Product communication issue [Unknown]
  - Device leakage [Unknown]

NARRATIVE: CASE EVENT DATE: 20241113
